FAERS Safety Report 4894900-6 (Version None)
Quarter: 2006Q1

REPORT INFORMATION
  Report Type: 
  Country: None (occurrence: None)
  Receive Date: 20060130
  Receipt Date: 20050209
  Transmission Date: 20060701
  Serious: No
  Sender: FDA-Public Use
  Company Number: US-BRISTOL-MYERS SQUIBB COMPANY-12855250

PATIENT
  Age: 72 Year
  Sex: Male
  Weight: 93 kg

DRUGS (8)
  1. METFORMIN HCL [Suspect]
     Dosage: 500 MG TABLETS
  2. GLYBURIDE [Concomitant]
  3. TRICOR [Concomitant]
  4. AVANDIA [Concomitant]
  5. LOVASTATIN [Concomitant]
  6. DILTIAZEM HCL [Concomitant]
  7. BENAZEPRIL HCL [Concomitant]
  8. TERAZOSIN HCL [Concomitant]

REACTIONS (3)
  - CHANGE OF BOWEL HABIT [None]
  - DYSGEUSIA [None]
  - STOMACH DISCOMFORT [None]
